FAERS Safety Report 15195013 (Version 1)
Quarter: 2018Q3

REPORT INFORMATION
  Report Type: Spontaneous
  Country: US (occurrence: US)
  Receive Date: 20180725
  Receipt Date: 20180725
  Transmission Date: 20181010
  Serious: No
  Sender: FDA-Public Use
  Company Number: US-SA-2018SA195686

PATIENT
  Sex: Female

DRUGS (1)
  1. DUPIXENT [Suspect]
     Active Substance: DUPILUMAB

REACTIONS (6)
  - Fatigue [Unknown]
  - Chills [Unknown]
  - Peripheral swelling [Unknown]
  - Pain in extremity [Unknown]
  - Weight bearing difficulty [Unknown]
  - Nausea [Unknown]
